FAERS Safety Report 16606374 (Version 1)
Quarter: 2019Q3

REPORT INFORMATION
  Report Type: Other
  Country: TR (occurrence: TR)
  Receive Date: 20190722
  Receipt Date: 20190722
  Transmission Date: 20191004
  Serious: Yes (Hospitalization)
  Sender: FDA-Public Use
  Company Number: TR-ORCHID HEALTHCARE-2071086

PATIENT
  Age: 46 Year
  Sex: Female

DRUGS (1)
  1. GEMIFLOXACIN MESYLATE. [Suspect]
     Active Substance: GEMIFLOXACIN MESYLATE
     Indication: UPPER RESPIRATORY TRACT INFECTION
     Route: 065

REACTIONS (1)
  - Kounis syndrome [Recovered/Resolved]
